FAERS Safety Report 9706409 (Version 1)
Quarter: 2013Q4

REPORT INFORMATION
  Report Type: Spontaneous
  Country: US (occurrence: US)
  Receive Date: 20131125
  Receipt Date: 20131125
  Transmission Date: 20140711
  Serious: No
  Sender: FDA-Public Use
  Company Number: US-BIOGENIDEC-2013BI110590

PATIENT
  Sex: Female

DRUGS (1)
  1. AVONEX [Suspect]
     Indication: MULTIPLE SCLEROSIS
     Route: 030

REACTIONS (7)
  - Irritable bowel syndrome [Not Recovered/Not Resolved]
  - Faecal incontinence [Not Recovered/Not Resolved]
  - Constipation [Not Recovered/Not Resolved]
  - Colitis [Not Recovered/Not Resolved]
  - Hypoaesthesia [Not Recovered/Not Resolved]
  - Blindness [Not Recovered/Not Resolved]
  - Gait disturbance [Not Recovered/Not Resolved]
